FAERS Safety Report 6263930-4 (Version None)
Quarter: 2009Q3

REPORT INFORMATION
  Report Type: 
  Country: None (occurrence: None)
  Receive Date: 20090710
  Receipt Date: 20090702
  Transmission Date: 20100115
  Serious: Yes (Other)
  Sender: FDA-Public Use
  Company Number: AU-AVENTIS-200916654GDDC

PATIENT
  Age: 82 Year
  Sex: Female

DRUGS (10)
  1. ARAVA [Suspect]
     Indication: RHEUMATOID ARTHRITIS
     Route: 048
     Dates: start: 20051001
  2. ARABLOC [Suspect]
     Indication: RHEUMATOID ARTHRITIS
     Route: 048
  3. GOLD INJECTION [Concomitant]
     Dosage: DOSE: UNK
     Route: 030
  4. CORTISONE [Concomitant]
     Route: 030
  5. PREDNISONE TAB [Concomitant]
     Route: 048
  6. FOSAMAX [Concomitant]
     Dosage: DOSE: UNK
  7. ADALAT [Concomitant]
     Dosage: DOSE: UNK
  8. LIPITOR [Concomitant]
     Dosage: DOSE: UNK
  9. PERINDOPRIL [Concomitant]
     Dosage: DOSE: UNK
  10. OXYCONTIN [Concomitant]
     Dosage: DOSE: UNK
     Route: 048

REACTIONS (3)
  - ARTHRALGIA [None]
  - ARTHRITIS [None]
  - PLEURISY [None]
